FAERS Safety Report 10557005 (Version 2)
Quarter: 2015Q1

REPORT INFORMATION
  Report Type: Report from Study
  Country: CA (occurrence: CA)
  Receive Date: 20141031
  Receipt Date: 20150123
  Transmission Date: 20150720
  Serious: Yes (Life-Threatening, Hospitalization, Other)
  Sender: FDA-Public Use
  Company Number: CA-SA-2014SA148080

PATIENT
  Sex: Female

DRUGS (10)
  1. CODEINE PHOSPHATE [Suspect]
     Active Substance: CODEINE PHOSPHATE
     Route: 065
  2. TYSABRI [Suspect]
     Active Substance: NATALIZUMAB
     Dosage: FORM: INTRAVENOUS SOLUTION
     Route: 065
     Dates: end: 2009
  3. MORPHINE [Suspect]
     Active Substance: MORPHINE
     Route: 065
  4. BENZYLPENICILLIN POTASSIUM [Suspect]
     Active Substance: PENICILLIN G POTASSIUM
     Route: 065
  5. CLONAZEPAM. [Concomitant]
     Active Substance: CLONAZEPAM
  6. ELAVIL [Concomitant]
     Active Substance: AMITRIPTYLINE HYDROCHLORIDE
  7. DEMEROL [Suspect]
     Active Substance: MEPERIDINE HYDROCHLORIDE
     Route: 065
  8. BENZYLPENICILLIN SODIUM [Suspect]
     Active Substance: PENICILLIN G SODIUM
     Route: 065
  9. BACLOFEN. [Suspect]
     Active Substance: BACLOFEN
     Route: 065
  10. OXYBUTYNIN [Concomitant]
     Active Substance: OXYBUTYNIN

REACTIONS (6)
  - Cardiac disorder [Unknown]
  - Apparent death [Unknown]
  - Anaphylactic shock [Unknown]
  - Urticaria [Unknown]
  - Pharyngeal oedema [Unknown]
  - Food allergy [Unknown]
